FAERS Safety Report 5797744-6 (Version None)
Quarter: 2008Q2

REPORT INFORMATION
  Report Type: 
  Country: None (occurrence: None)
  Receive Date: 20080630
  Receipt Date: 20080618
  Transmission Date: 20081010
  Serious: Yes (Other)
  Sender: FDA-Public Use
  Company Number: 14206098

PATIENT
  Sex: Female

DRUGS (3)
  1. EMSAM [Suspect]
     Indication: DEPRESSION
     Dosage: 6 MILLIGRAM, 1 DAY TD
     Dates: end: 20080425
  2. SYNTHROID [Concomitant]
  3. ZOLPIDEM [Concomitant]

REACTIONS (8)
  - ATAXIA [None]
  - HYPERTENSION [None]
  - PAIN IN JAW [None]
  - PALPITATIONS [None]
  - TACHYCARDIA [None]
  - TOOTH DISORDER [None]
  - TYRAMINE REACTION [None]
  - URINARY TRACT INFECTION [None]
